FAERS Safety Report 8840280 (Version 3)
Quarter: 2013Q1

REPORT INFORMATION
  Report Type: Spontaneous
  Country: DE (occurrence: DE)
  Receive Date: 20121015
  Receipt Date: 20130117
  Transmission Date: 20140127
  Serious: Yes (Hospitalization)
  Sender: FDA-Public Use
  Company Number: DE-CELGENEUS-062-50794-12101263

PATIENT
  Age: 71 Year
  Sex: Male
  Weight: 95 kg

DRUGS (6)
  1. VIDAZA [Suspect]
     Indication: ACUTE MYELOID LEUKAEMIA
     Dosage: 150 MG
     Route: 058
     Dates: start: 20120514, end: 20120904
  2. ANTIBIOTICS [Concomitant]
     Indication: URINARY TRACT INFECTION
     Route: 065
  3. ANTIBIOTICS [Concomitant]
     Indication: PROPHYLAXIS
     Route: 065
  4. INSULIN [Concomitant]
     Indication: PRODUCT USED FOR UNKNOWN INDICATION
     Route: 065
  5. CITOPRAM [Concomitant]
     Indication: PRODUCT USED FOR UNKNOWN INDICATION
     Route: 065
  6. GABAPENTIN [Concomitant]
     Indication: RESTLESS LEGS SYNDROME
     Route: 065

REACTIONS (1)
  - Guillain-Barre syndrome [Recovered/Resolved]
